FAERS Safety Report 18786675 (Version 2)
Quarter: 2021Q1

REPORT INFORMATION
  Report Type: Spontaneous
  Country: ZA (occurrence: ZA)
  Receive Date: 20210126
  Receipt Date: 20210210
  Transmission Date: 20210419
  Serious: Yes (Other)
  Sender: FDA-Public Use
  Company Number: ZA-JNJFOC-20210135295

PATIENT
  Age: 14 Year
  Sex: Female

DRUGS (1)
  1. XARELTO [Suspect]
     Active Substance: RIVAROXABAN
     Indication: CEREBRAL VENOUS THROMBOSIS
     Dosage: UNK
     Route: 048

REACTIONS (2)
  - Menorrhagia [Unknown]
  - Off label use [Unknown]
